FAERS Safety Report 7516377-4 (Version None)
Quarter: 2011Q2

REPORT INFORMATION
  Report Type: 
  Country: None (occurrence: None)
  Receive Date: 20110428
  Receipt Date: 20101116
  Transmission Date: 20111010
  Serious: Yes (Hospitalization)
  Sender: FDA-Public Use
  Company Number: 2010PROUSA00117

PATIENT
  Age: 67 Year
  Sex: Male
  Weight: 86.6 kg

DRUGS (15)
  1. CASODEX [Concomitant]
  2. PROVENGE [Suspect]
  3. VESICARE [Concomitant]
  4. PROVENGE [Suspect]
     Indication: PROSTATE CANCER METASTATIC
     Dosage: 250 ML, SINGLE, INTRAVENOUS; 250 ML, SINGLE, INTRAVENOUS; 250 ML, SINGLE, INTRAVENOUS
     Route: 042
     Dates: start: 20101028, end: 20101028
  5. PROVENGE [Suspect]
     Indication: PROSTATE CANCER METASTATIC
     Dosage: 250 ML, SINGLE, INTRAVENOUS; 250 ML, SINGLE, INTRAVENOUS; 250 ML, SINGLE, INTRAVENOUS
     Route: 042
     Dates: start: 20101015, end: 20101015
  6. PROVENGE [Suspect]
     Indication: PROSTATE CANCER METASTATIC
     Dosage: 250 ML, SINGLE, INTRAVENOUS; 250 ML, SINGLE, INTRAVENOUS; 250 ML, SINGLE, INTRAVENOUS
     Route: 042
     Dates: start: 20101112, end: 20101112
  7. LUPRON [Concomitant]
  8. FLECAINIDE ACETATE [Concomitant]
  9. JANTOVEN [Concomitant]
  10. TIGER BALM /00734101/ (CAMPHOR, EUCALYPTUS GLOBULUS OIL, MENTHOL, SYZY [Concomitant]
  11. MULTIVITAMINS, OTHER COMBINATIONS [Concomitant]
  12. PROVENGE [Suspect]
  13. COUMADIN [Concomitant]
  14. DILTIAZEM HCL [Concomitant]
  15. TUMS /00108001/ (CALCIUM CARBONATE) [Concomitant]

REACTIONS (6)
  - DEVICE RELATED INFECTION [None]
  - MUSCULOSKELETAL PAIN [None]
  - CHILLS [None]
  - PYREXIA [None]
  - PROSTATE CANCER METASTATIC [None]
  - TREMOR [None]
